FAERS Safety Report 10307234 (Version 1)
Quarter: 2014Q3

REPORT INFORMATION
  Report Type: Spontaneous
  Country: TW (occurrence: TW)
  Receive Date: 20140716
  Receipt Date: 20140716
  Transmission Date: 20150326
  Serious: Yes (Death, Hospitalization, Other)
  Sender: FDA-Public Use
  Company Number: TW-ROCHE-1433685

PATIENT
  Age: 67 Year
  Sex: Male

DRUGS (7)
  1. NEORAL [Suspect]
     Active Substance: CYCLOSPORINE
     Route: 065
     Dates: start: 2007, end: 200704
  2. PREDNISOLON [Suspect]
     Active Substance: PREDNISOLONE
     Indication: PROPHYLAXIS AGAINST TRANSPLANT REJECTION
     Route: 065
     Dates: start: 200702, end: 2007
  3. CELLCEPT [Suspect]
     Active Substance: MYCOPHENOLATE MOFETIL\MYCOPHENOLATE MOFETIL HYDROCHLORIDE
     Route: 065
     Dates: start: 2007, end: 200704
  4. PREDNISOLON [Suspect]
     Active Substance: PREDNISOLONE
     Route: 065
  5. NEORAL [Suspect]
     Active Substance: CYCLOSPORINE
     Dosage: HALF DOSAGE
     Route: 065
     Dates: start: 200704, end: 20070420
  6. NEORAL [Suspect]
     Active Substance: CYCLOSPORINE
     Indication: PROPHYLAXIS AGAINST TRANSPLANT REJECTION
     Route: 065
     Dates: start: 200702, end: 2007
  7. CELLCEPT [Suspect]
     Active Substance: MYCOPHENOLATE MOFETIL\MYCOPHENOLATE MOFETIL HYDROCHLORIDE
     Indication: PROPHYLAXIS AGAINST TRANSPLANT REJECTION
     Route: 065
     Dates: start: 200702, end: 2007

REACTIONS (11)
  - Pancreatitis acute [Fatal]
  - Hypotension [Not Recovered/Not Resolved]
  - Acute respiratory distress syndrome [Fatal]
  - Diarrhoea [Unknown]
  - Septic shock [Unknown]
  - Adrenal insufficiency [Unknown]
  - Cytomegalovirus infection [Fatal]
  - Renal failure acute [Fatal]
  - Bradycardia [Not Recovered/Not Resolved]
  - Altered state of consciousness [Recovered/Resolved]
  - Abdominal discomfort [Unknown]

NARRATIVE: CASE EVENT DATE: 20070329
